FAERS Safety Report 9826581 (Version 1)
Quarter: 2013Q4

REPORT INFORMATION
  Report Type: Spontaneous
  Country: US (occurrence: None)
  Receive Date: 20131223
  Receipt Date: 20131223
  Transmission Date: 20140711
  Serious: No
  Sender: FDA-Public Use
  Company Number: 222755LEO

PATIENT
  Sex: Female

DRUGS (1)
  1. PICATO [Suspect]
     Indication: ACTINIC KERATOSIS
     Dosage: (FOR 3 DAYS), ON BRIDGE OF NOSE
     Dates: start: 20130403, end: 20130405

REACTIONS (10)
  - Application site erythema [None]
  - Application site swelling [None]
  - Application site vesicles [None]
  - Application site haemorrhage [None]
  - Application site nodule [None]
  - Application site dryness [None]
  - Application site exfoliation [None]
  - Application site scab [None]
  - Rosacea [None]
  - Capillary fragility [None]
